FAERS Safety Report 16138457 (Version 1)
Quarter: 2019Q1

REPORT INFORMATION
  Report Type: Spontaneous
  Country: US (occurrence: US)
  Receive Date: 20190330
  Receipt Date: 20190330
  Transmission Date: 20190418
  Serious: No
  Sender: FDA-Public Use
  Company Number: US-B.I. PHARMACEUTICALS,INC./RIDGEFIELD-2019-BI-013392

PATIENT
  Sex: Male

DRUGS (2)
  1. OFEV [Suspect]
     Active Substance: NINTEDANIB
     Indication: IDIOPATHIC PULMONARY FIBROSIS
     Dosage: FORM STRENGTH: 100 MG; FORMULATION: CAPSULE?ACTION(S) TAKEN WITH PRODUCT: DOSE INCREASED
     Route: 048
     Dates: end: 20190106
  2. OFEV [Suspect]
     Active Substance: NINTEDANIB
     Dosage: 1 CAPSULE TWICE A DAY;  STRENGTH: 150 MG; FORMULATION: CAPSULE? ACTION(S) TAKEN: DOSE NOT CHANGED
     Route: 048
     Dates: start: 20190107

REACTIONS (2)
  - Tinnitus [Not Recovered/Not Resolved]
  - Visual impairment [Not Recovered/Not Resolved]

NARRATIVE: CASE EVENT DATE: 201901
